FAERS Safety Report 15226261 (Version 3)
Quarter: 2018Q4

REPORT INFORMATION
  Report Type: Spontaneous
  Country: US (occurrence: US)
  Receive Date: 20180801
  Receipt Date: 20181101
  Transmission Date: 20190204
  Serious: Yes (Hospitalization)
  Sender: FDA-Public Use
  Company Number: US-ALLERGAN-1835539US

PATIENT
  Age: 79 Year
  Sex: Male
  Weight: 108.84 kg

DRUGS (7)
  1. TRAZODONE [Concomitant]
     Active Substance: TRAZODONE HYDROCHLORIDE
     Indication: PROSTATIC DISORDER
     Dosage: UNK
     Route: 048
  2. TAMSULOSIN [Concomitant]
     Active Substance: TAMSULOSIN
     Indication: PROSTATIC DISORDER
     Dosage: UNK
     Route: 065
  3. ASPIRIN. [Concomitant]
     Active Substance: ASPIRIN
     Indication: CARDIAC DISORDER
     Dosage: 1/4
     Route: 048
  4. LINZESS [Suspect]
     Active Substance: LINACLOTIDE
     Dosage: 145 UNK, UNK
     Route: 048
     Dates: start: 20180522, end: 20180526
  5. LINZESS [Suspect]
     Active Substance: LINACLOTIDE
     Indication: IRRITABLE BOWEL SYNDROME
     Dosage: 145 ?G, UNKNOWN
     Route: 065
     Dates: start: 201807
  6. DIAZEPAM. [Concomitant]
     Active Substance: DIAZEPAM
     Indication: ANXIETY
     Dosage: UNK
     Route: 048
  7. LISINOPRIL. [Concomitant]
     Active Substance: LISINOPRIL
     Indication: CARDIAC DISORDER
     Dosage: UNK
     Route: 048

REACTIONS (9)
  - Constipation [Unknown]
  - Asthenia [Unknown]
  - Cardiac flutter [Unknown]
  - Dysuria [Unknown]
  - Faeces hard [Not Recovered/Not Resolved]
  - Diarrhoea [Unknown]
  - Aphonia [Not Recovered/Not Resolved]
  - Abdominal pain [Unknown]
  - Drug ineffective [Unknown]

NARRATIVE: CASE EVENT DATE: 201807
